FAERS Safety Report 5423133-X (Version None)
Quarter: 2007Q3

REPORT INFORMATION
  Report Type: 
  Country: None (occurrence: None)
  Receive Date: 20070821
  Receipt Date: 20070809
  Transmission Date: 20080115
  Serious: Yes (Hospitalization, Other)
  Sender: FDA-Public Use
  Company Number: 230003K07SWE

PATIENT
  Age: 60 Year
  Sex: Female

DRUGS (3)
  1. REBIF [Suspect]
     Dates: start: 19990101
  2. ANTI-ASTHMATICS [Concomitant]
  3. ALLERGY MEDICATION [Concomitant]

REACTIONS (4)
  - ANGIOPATHY [None]
  - BLOOD CHOLESTEROL INCREASED [None]
  - LIPIDS INCREASED [None]
  - MYOCARDIAL INFARCTION [None]
